FAERS Safety Report 12221514 (Version 2)
Quarter: 2016Q2

REPORT INFORMATION
  Report Type: Spontaneous
  Country: US (occurrence: US)
  Receive Date: 20160330
  Receipt Date: 20160512
  Transmission Date: 20160815
  Serious: Yes (Other)
  Sender: FDA-Public Use
  Company Number: US-RETROPHIN, INC.-2016RTN00005

PATIENT
  Age: 4 Month
  Sex: Female
  Weight: 6.35 kg

DRUGS (2)
  1. MULTI VITAMIN [Concomitant]
     Active Substance: VITAMINS
  2. CHOLBAM [Suspect]
     Active Substance: CHOLIC ACID
     Indication: ADRENOLEUKODYSTROPHY
     Dosage: 50 MG, 1X/DAY
     Dates: start: 20160208

REACTIONS (3)
  - Blood alkaline phosphatase increased [Recovering/Resolving]
  - Aspartate aminotransferase increased [Recovering/Resolving]
  - Gastrostomy [Unknown]

NARRATIVE: CASE EVENT DATE: 20160224
